FAERS Safety Report 21626960 (Version 1)
Quarter: 2022Q4

REPORT INFORMATION
  Report Type: Report from Study
  Country: US (occurrence: US)
  Receive Date: 20221122
  Receipt Date: 20221122
  Transmission Date: 20230112
  Serious: No
  Sender: FDA-Public Use
  Company Number: US-ABBVIE-22K-163-4452361-00

PATIENT
  Sex: Female

DRUGS (2)
  1. SKYRIZI [Suspect]
     Active Substance: RISANKIZUMAB-RZAA
     Indication: Psoriasis
     Dosage: WEEK 0
     Route: 058
     Dates: start: 20220503
  2. SKYRIZI [Suspect]
     Active Substance: RISANKIZUMAB-RZAA
     Dosage: WEEK 4
     Route: 058
     Dates: start: 20220531

REACTIONS (10)
  - Nausea [Recovered/Resolved]
  - Influenza like illness [Recovered/Resolved]
  - Vaccination site erythema [Recovered/Resolved]
  - Pyrexia [Recovered/Resolved]
  - Vaccination site bruising [Not Recovered/Not Resolved]
  - Chills [Recovered/Resolved]
  - Vaccination site swelling [Recovered/Resolved]
  - Fatigue [Unknown]
  - Abdominal discomfort [Unknown]
  - Nausea [Unknown]
